FAERS Safety Report 7425673-0 (Version None)
Quarter: 2011Q2

REPORT INFORMATION
  Report Type: 
  Country: None (occurrence: None)
  Receive Date: 20110420
  Receipt Date: 20110411
  Transmission Date: 20111010
  Serious: Yes (Hospitalization)
  Sender: FDA-Public Use
  Company Number: NL-MEDIMMUNE-MEDI-0013078

PATIENT
  Sex: Male
  Weight: 4 kg

DRUGS (4)
  1. SODIUM POTASSIUM CITRATE BEVERAGE [Concomitant]
  2. SYNAGIS [Suspect]
     Route: 030
     Dates: start: 20110411, end: 20110411
  3. SYNAGIS [Suspect]
     Route: 030
     Dates: start: 20110314, end: 20110314
  4. FERROUS FUMARATE [Concomitant]

REACTIONS (3)
  - UNRESPONSIVE TO STIMULI [None]
  - PALLOR [None]
  - SYNCOPE [None]
